FAERS Safety Report 9796077 (Version 1)
Quarter: 2014Q1

REPORT INFORMATION
  Report Type: Spontaneous
  Country: US (occurrence: US)
  Receive Date: 20140103
  Receipt Date: 20140103
  Transmission Date: 20141002
  Serious: Yes (Other)
  Sender: FDA-Public Use
  Company Number: US-BRISTOL-MYERS SQUIBB COMPANY-19951540

PATIENT
  Sex: 0

DRUGS (1)
  1. GLUCOPHAGE [Suspect]

REACTIONS (1)
  - Anaphylactic reaction [Unknown]
